FAERS Safety Report 18349745 (Version 2)
Quarter: 2020Q4

REPORT INFORMATION
  Report Type: Report from Study
  Country: CA (occurrence: CA)
  Receive Date: 20201006
  Receipt Date: 20201008
  Transmission Date: 20210114
  Serious: Yes (Other)
  Sender: FDA-Public Use
  Company Number: CA-PFIZER INC-2020380929

PATIENT
  Sex: Male

DRUGS (1)
  1. BEVACIZUMAB. [Suspect]
     Active Substance: BEVACIZUMAB
     Indication: ANAPLASTIC ASTROCYTOMA
     Dosage: UNK
     Route: 042

REACTIONS (3)
  - Intentional product use issue [Unknown]
  - Off label use [Unknown]
  - Cerebrovascular accident [Unknown]
